FAERS Safety Report 17915667 (Version 1)
Quarter: 2020Q2

REPORT INFORMATION
  Report Type: Spontaneous
  Country: CA (occurrence: CA)
  Receive Date: 20200619
  Receipt Date: 20200619
  Transmission Date: 20200714
  Serious: Yes (Hospitalization, Other)
  Sender: FDA-Public Use
  Company Number: CA-TEVA-2020-CA-1789425

PATIENT
  Age: 68 Year
  Sex: Male

DRUGS (5)
  1. VALPROIC ACID. [Suspect]
     Active Substance: VALPROIC ACID
     Indication: TONIC CONVULSION
     Dosage: 2600 MILLIGRAM DAILY;
     Route: 065
  2. CARBIDOPA. [Concomitant]
     Active Substance: CARBIDOPA
  3. LEVETIRACETAM. [Suspect]
     Active Substance: LEVETIRACETAM
     Indication: TONIC CONVULSION
     Dosage: 3000 MILLIGRAM DAILY;
     Route: 065
  4. OXITRIPTAN [Suspect]
     Active Substance: OXITRIPTAN
     Indication: TONIC CONVULSION
     Dosage: 1200 MILLIGRAM DAILY;
     Route: 065
  5. PHENYTOIN. [Suspect]
     Active Substance: PHENYTOIN
     Indication: TONIC CONVULSION
     Dosage: 75 MILLIGRAM DAILY;
     Route: 065

REACTIONS (2)
  - Somnolence [Unknown]
  - Serotonin syndrome [Unknown]
